FAERS Safety Report 22171352 (Version 1)
Quarter: 2023Q2

REPORT INFORMATION
  Report Type: Spontaneous
  Country: PE (occurrence: PE)
  Receive Date: 20230404
  Receipt Date: 20230404
  Transmission Date: 20230722
  Serious: Yes (Other)
  Sender: FDA-Public Use
  Company Number: PE-JNJFOC-20230152914

PATIENT
  Age: 39 Year
  Sex: Female
  Weight: 63 kg

DRUGS (7)
  1. TREMFYA [Suspect]
     Active Substance: GUSELKUMAB
     Indication: Psoriasis
     Route: 065
     Dates: start: 202207
  2. FLUTICASONE [Concomitant]
     Active Substance: FLUTICASONE
  3. CEPHALEXIN [Concomitant]
     Active Substance: CEPHALEXIN
  4. PREDNISONE [Concomitant]
     Active Substance: PREDNISONE
  5. METHOTREXATE [Concomitant]
     Active Substance: METHOTREXATE
  6. AMOXICILLIN [Concomitant]
     Active Substance: AMOXICILLIN
  7. CLAVULANIC ACID [Concomitant]
     Active Substance: CLAVULANIC ACID

REACTIONS (1)
  - Peripheral T-cell lymphoma unspecified [Unknown]

NARRATIVE: CASE EVENT DATE: 20230301
